FAERS Safety Report 4714097-2 (Version None)
Quarter: 2005Q2

REPORT INFORMATION
  Report Type: 
  Country: None (occurrence: None)
  Receive Date: 20050630
  Receipt Date: 20040923
  Transmission Date: 20051028
  Serious: No
  Sender: FDA-Public Use
  Company Number: 381474

PATIENT
  Age: 24 Year
  Sex: Male

DRUGS (3)
  1. ROFERON-A [Suspect]
     Indication: BEHCET'S SYNDROME
     Dosage: 3 PER WEEK SUBCUTANEOUS
     Route: 058
     Dates: start: 20040614, end: 20040715
  2. ROFERON-A [Suspect]
     Indication: VASCULITIS
     Dosage: 3 PER WEEK SUBCUTANEOUS
     Route: 058
     Dates: start: 20040614, end: 20040715
  3. PREDNISONE [Concomitant]

REACTIONS (3)
  - HYPERSENSITIVITY [None]
  - RASH [None]
  - VASCULITIS [None]
